FAERS Safety Report 7084468-0 (Version None)
Quarter: 2010Q4

REPORT INFORMATION
  Report Type: 
  Country: None (occurrence: None)
  Receive Date: 20101104
  Receipt Date: 20101027
  Transmission Date: 20110411
  Serious: Yes (Death, Hospitalization, Disabling)
  Sender: FDA-Public Use
  Company Number: NL-ELI_LILLY_AND_COMPANY-NL201008007963

PATIENT
  Sex: Male
  Weight: 109 kg

DRUGS (7)
  1. ALIMTA [Suspect]
     Indication: NON-SMALL CELL LUNG CANCER STAGE IV
     Dosage: 1100 MG, UNKNOWN
     Route: 042
     Dates: start: 20100720
  2. CISPLATIN [Concomitant]
     Indication: NON-SMALL CELL LUNG CANCER STAGE IV
     Dosage: 165 MG, UNK
     Route: 042
     Dates: start: 20100620
  3. CISPLATIN [Concomitant]
     Dosage: 165 MG, UNK
     Route: 042
     Dates: start: 20100720
  4. DEXAMETHASONE [Concomitant]
     Dosage: 8 MG, (4 X 2 A 4 MG) UNK
     Route: 048
     Dates: start: 20100628, end: 20100723
  5. FOLIC ACID [Concomitant]
     Dosage: 0.5 MG, UNK (1DD2)
     Route: 048
     Dates: start: 20100622
  6. PRIMPERAN [Concomitant]
     Indication: NAUSEA
     Dosage: 10M, AS NEEDED
     Route: 048
  7. VITAMIN B-12 [Concomitant]

REACTIONS (4)
  - CEREBRAL INFARCTION [None]
  - DEATH [None]
  - HEMIPARESIS [None]
  - MYOCARDIAL INFARCTION [None]
